FAERS Safety Report 13094030 (Version 3)
Quarter: 2017Q2

REPORT INFORMATION
  Report Type: Spontaneous
  Country: US (occurrence: US)
  Receive Date: 20170106
  Receipt Date: 20170522
  Transmission Date: 20170830
  Serious: No
  Sender: FDA-Public Use
  Company Number: US-TEVA-726536USA

PATIENT
  Sex: Male

DRUGS (1)
  1. PROAIR HFA [Suspect]
     Active Substance: ALBUTEROL SULFATE
     Route: 055

REACTIONS (2)
  - Product use issue [Unknown]
  - Cough [Recovered/Resolved]

NARRATIVE: CASE EVENT DATE: 201612
